FAERS Safety Report 8844717 (Version 1)
Quarter: 2012Q4

REPORT INFORMATION
  Report Type: Spontaneous
  Country: US (occurrence: None)
  Receive Date: 20121016
  Receipt Date: 20121016
  Transmission Date: 20130627
  Serious: Yes (Hospitalization)
  Sender: FDA-Public Use
  Company Number: None

PATIENT
  Age: 88 Year
  Sex: Female
  Weight: 41.2 kg

DRUGS (7)
  1. PRADAXA [Suspect]
     Indication: ATRIAL FIBRILLATION
     Route: 048
  2. COUMADIN [Suspect]
     Indication: ATRIAL FIBRILLATION
     Route: 048
  3. DIGOXIN [Concomitant]
  4. ARICEPT [Concomitant]
  5. NAMENDA [Concomitant]
  6. FUROSEMIDE [Concomitant]
  7. VIACTIV [Concomitant]

REACTIONS (4)
  - Gastrointestinal haemorrhage [None]
  - Colon adenoma [None]
  - Haemoglobin decreased [None]
  - Haematocrit decreased [None]
